FAERS Safety Report 21255766 (Version 4)
Quarter: 2022Q3

REPORT INFORMATION
  Report Type: Report from Study
  Country: CN (occurrence: CN)
  Receive Date: 20220825
  Receipt Date: 20220921
  Transmission Date: 20221027
  Serious: Yes (Hospitalization)
  Sender: FDA-Public Use
  Company Number: CN-G1 THERAPEUTICS-2022G1CN0000196

PATIENT

DRUGS (18)
  1. TRILACICLIB [Suspect]
     Active Substance: TRILACICLIB
     Indication: Myelosuppression
     Dosage: 338.4 MG; 240 MG/M2 DAY 1 AND 8 OF A 21-DAY CYCLE
     Route: 041
     Dates: start: 20220602, end: 20220623
  2. TRILACICLIB [Suspect]
     Active Substance: TRILACICLIB
     Dosage: 338.4 MG; 240 MG/M2 DAY 1 AND 8 OF A 21-DAY CYCLE
     Route: 041
     Dates: start: 20220705, end: 20220810
  3. TRILACICLIB [Suspect]
     Active Substance: TRILACICLIB
     Dosage: 338.4 MG; 240 MG/M2 DAY 1 AND 8 OF A 21-DAY CYCLE
     Route: 041
     Dates: start: 20220823
  4. CARBOPLATIN [Suspect]
     Active Substance: CARBOPLATIN
     Indication: Breast cancer
     Dosage: 217 MG; AUC2 DAY 1 AND 8 OF A 21-DAY CYCLE
     Route: 041
     Dates: start: 20220602, end: 20220623
  5. CARBOPLATIN [Suspect]
     Active Substance: CARBOPLATIN
     Dosage: 173.6 MG; 20% REDUCTION AUC DAY 1 AND 8 OF A 21-DAY CYCLE
     Route: 041
     Dates: start: 20220705, end: 20220810
  6. CARBOPLATIN [Suspect]
     Active Substance: CARBOPLATIN
     Dosage: 173.6 MG; 20% REDUCTION AUC DAY 1 AND 8 OF A 21-DAY CYCLE
     Route: 041
     Dates: start: 20220823
  7. GEMCITABINE [Suspect]
     Active Substance: GEMCITABINE
     Indication: Breast cancer
     Dosage: 1410 MG; 1000 MG/M2 DAY 1 AND 8 OF A 21-DAY CYCLE
     Route: 041
     Dates: start: 20220602, end: 20220623
  8. GEMCITABINE [Suspect]
     Active Substance: GEMCITABINE
     Dosage: 1128 MG; 800 MG/M2 DAY 1 AND 8 OF A 21-DAY CYCLE
     Route: 041
     Dates: start: 20220705, end: 20220810
  9. GEMCITABINE [Suspect]
     Active Substance: GEMCITABINE
     Dosage: 852 MG; 600 MG/M2 DAY 1 AND 8 OF A 21-DAY CYCLE
     Route: 041
     Dates: start: 20220823
  10. DEXAMETHASONE ACETATE;DEXAMETHASONE SODIUM PHOSPHATE [Concomitant]
     Indication: Allergy prophylaxis
     Dosage: 5 MG, ONCE
     Route: 042
     Dates: start: 20220719, end: 20220719
  11. DEXAMETHASONE ACETATE;DEXAMETHASONE SODIUM PHOSPHATE [Concomitant]
     Dosage: 5 MG, ONCE
     Route: 042
     Dates: start: 20220726, end: 20220726
  12. FOSAPREPITANT DIMEGLUMINE [Concomitant]
     Active Substance: FOSAPREPITANT DIMEGLUMINE
     Indication: Prophylaxis of nausea and vomiting
     Dosage: 0.15 G, ONCE
     Route: 042
     Dates: start: 20220719, end: 20220719
  13. FOSAPREPITANT DIMEGLUMINE [Concomitant]
     Active Substance: FOSAPREPITANT DIMEGLUMINE
     Dosage: 0.15 G, ONCE
     Route: 042
     Dates: start: 20220726, end: 20220726
  14. AZASETRON HYDROCHLORIDE;SODIUM CHLORIDE [Concomitant]
     Indication: Prophylaxis of nausea and vomiting
     Dosage: 10 MG, ONCE
     Route: 042
     Dates: start: 20220719, end: 20220719
  15. TROPISETRON HYDROCHLORIDE [Concomitant]
     Active Substance: TROPISETRON HYDROCHLORIDE
     Indication: Prophylaxis of nausea and vomiting
     Dosage: 8 MG, BID
     Route: 048
     Dates: start: 20220719, end: 20220725
  16. DEXAMETHASONE ACETATE [Concomitant]
     Active Substance: DEXAMETHASONE ACETATE
     Indication: Allergy prophylaxis
     Dosage: 4.5 MG, QD
     Route: 048
     Dates: start: 20220719, end: 20220721
  17. BICYCLOL [Concomitant]
     Active Substance: BICYCLOL
     Indication: Prophylaxis
     Dosage: 25 MG, TID
     Route: 048
     Dates: start: 20220719, end: 20220725
  18. ONDANSETRON HYDROCHLORIDE [Concomitant]
     Active Substance: ONDANSETRON HYDROCHLORIDE
     Indication: Prophylaxis of nausea and vomiting
     Dosage: 10 MG, ONCE
     Route: 042
     Dates: start: 20220726, end: 20220726

REACTIONS (1)
  - Gamma-glutamyltransferase increased [Not Recovered/Not Resolved]

NARRATIVE: CASE EVENT DATE: 20220816
